FAERS Safety Report 9006486 (Version 1)
Quarter: 2013Q1

REPORT INFORMATION
  Report Type: Spontaneous
  Country: US (occurrence: US)
  Receive Date: 20130110
  Receipt Date: 20130110
  Transmission Date: 20140127
  Serious: No
  Sender: FDA-Public Use
  Company Number: US-PFIZER INC-2013009313

PATIENT
  Sex: Male

DRUGS (6)
  1. SUTENT [Suspect]
     Dosage: 50 MG, CYCLIC
     Dates: start: 201212
  2. SUTENT [Suspect]
     Dosage: 50 MG, DAILY
     Dates: end: 20130107
  3. LASIX [Concomitant]
     Dosage: UNK
  4. NIFEDIPINE [Concomitant]
     Dosage: UNK
  5. LISINOPRIL [Concomitant]
     Dosage: UNK
  6. CLONIDINE [Concomitant]
     Dosage: UNK

REACTIONS (3)
  - Stomatitis [Unknown]
  - Oral mucosal blistering [Not Recovered/Not Resolved]
  - Skin discolouration [Not Recovered/Not Resolved]
